FAERS Safety Report 6656838-3 (Version None)
Quarter: 2010Q1

REPORT INFORMATION
  Report Type: 
  Country: None (occurrence: None)
  Receive Date: 20100325
  Receipt Date: 20100310
  Transmission Date: 20100710
  Serious: Yes (Hospitalization)
  Sender: FDA-Public Use
  Company Number: CIO10003626

PATIENT
  Age: 10 Year
  Sex: Female

DRUGS (1)
  1. PEPTO-BISMOL ORIGINAL FORMULA, FLAVOR UNKNOWN (BISMUTH SUBSALICYLATE 2 [Suspect]
     Indication: ABDOMINAL PAIN
     Dosage: 2 TSP, 1 ONLY, ORAL
     Route: 048
     Dates: start: 20100303, end: 20100303

REACTIONS (7)
  - ASTHENIA [None]
  - DIARRHOEA [None]
  - DRUG ADMINISTRATION ERROR [None]
  - MALAISE [None]
  - PLATELET COUNT DECREASED [None]
  - PYREXIA [None]
  - WHITE BLOOD CELL COUNT DECREASED [None]
